FAERS Safety Report 6846374-3 (Version None)
Quarter: 2010Q3

REPORT INFORMATION
  Report Type: 
  Country: None (occurrence: None)
  Receive Date: 20100715
  Receipt Date: 20071112
  Transmission Date: 20110219
  Serious: Yes (Other)
  Sender: FDA-Public Use
  Company Number: US-PFIZER INC-2007077335

PATIENT
  Sex: Female
  Weight: 59.1 kg

DRUGS (7)
  1. CHANTIX [Suspect]
     Indication: SMOKING CESSATION THERAPY
     Route: 048
     Dates: start: 20070712, end: 20070821
  2. ADVAIR DISKUS 100/50 [Concomitant]
  3. ATROVENT [Concomitant]
  4. ZANTAC [Concomitant]
     Route: 048
  5. NEXIUM [Concomitant]
     Route: 048
  6. REGLAN [Concomitant]
     Route: 048
  7. LEVOTHROID [Concomitant]
     Route: 048

REACTIONS (3)
  - GENERAL PHYSICAL HEALTH DETERIORATION [None]
  - MYCOBACTERIUM AVIUM COMPLEX INFECTION [None]
  - NAUSEA [None]
